FAERS Safety Report 24901029 (Version 1)
Quarter: 2025Q1

REPORT INFORMATION
  Report Type: Spontaneous
  Country: ES (occurrence: ES)
  Receive Date: 20250129
  Receipt Date: 20250129
  Transmission Date: 20250409
  Serious: Yes (Other)
  Sender: TAKEDA
  Company Number: ES-TAKEDA-2025TUS007548

PATIENT
  Age: 16 Year
  Sex: Female

DRUGS (4)
  1. HUMAN IMMUNOGLOBULIN G [Suspect]
     Active Substance: HUMAN IMMUNOGLOBULIN G
     Indication: Immune thrombocytopenia
  2. PREDNISONE [Concomitant]
     Active Substance: PREDNISONE
  3. BARICITINIB [Concomitant]
     Active Substance: BARICITINIB
     Dosage: 4 MILLIGRAM, QD
  4. BARICITINIB [Concomitant]
     Active Substance: BARICITINIB
     Dosage: 2 MILLIGRAM, QD

REACTIONS (1)
  - Drug ineffective [Unknown]
